FAERS Safety Report 4808748-1 (Version None)
Quarter: 2005Q4

REPORT INFORMATION
  Report Type: 
  Country: None (occurrence: None)
  Receive Date: 20051021
  Receipt Date: 20040421
  Transmission Date: 20060501
  Serious: Yes (Life-Threatening, Hospitalization)
  Sender: FDA-Public Use
  Company Number: EWC040438694

PATIENT
  Age: 25 Year
  Sex: Female
  Weight: 70 kg

DRUGS (3)
  1. ZYPREXA [Suspect]
     Indication: SCHIZOPHRENIA
     Dosage: 20 MG/1
     Dates: start: 20031118
  2. FERROPLEX (FERROUS TARTRATE) [Concomitant]
  3. LEUKOCYTE COUNT/9 [Concomitant]

REACTIONS (6)
  - CSF WHITE BLOOD CELL COUNT INCREASED [None]
  - ELECTROCARDIOGRAM ABNORMAL [None]
  - GRAND MAL CONVULSION [None]
  - HAEMOGLOBIN DECREASED [None]
  - INFECTION [None]
  - NERVOUS SYSTEM DISORDER [None]
